FAERS Safety Report 20808598 (Version 1)
Quarter: 2022Q2

REPORT INFORMATION
  Report Type: Spontaneous
  Country: US (occurrence: None)
  Receive Date: 20220509
  Receipt Date: 20220509
  Transmission Date: 20220721
  Serious: Yes (Hospitalization, Other)
  Sender: FDA-Public Use
  Company Number: None

PATIENT

DRUGS (1)
  1. MAVYRET [Suspect]
     Active Substance: GLECAPREVIR\PIBRENTASVIR

REACTIONS (6)
  - Epistaxis [None]
  - Asthenia [None]
  - Abdominal pain [None]
  - Hyperhidrosis [None]
  - Epistaxis [None]
  - Seasonal allergy [None]
